FAERS Safety Report 16575095 (Version 2)
Quarter: 2019Q3

REPORT INFORMATION
  Report Type: Report from Study
  Country: US (occurrence: US)
  Receive Date: 20190715
  Receipt Date: 20190802
  Transmission Date: 20191004
  Serious: Yes (Hospitalization)
  Sender: FDA-Public Use
  Company Number: PHHO2019US007101

PATIENT
  Age: 47 Year
  Sex: Female
  Weight: 63 kg

DRUGS (4)
  1. KISQALI [Suspect]
     Active Substance: RIBOCICLIB
     Dosage: 400 MG, QD
     Route: 048
     Dates: start: 20190705
  2. GOSERELIN [Suspect]
     Active Substance: GOSERELIN
     Indication: HER-2 POSITIVE BREAST CANCER
     Dosage: 3.6 MG, UNK
     Route: 065
     Dates: start: 20190514, end: 20190611
  3. KISQALI [Suspect]
     Active Substance: RIBOCICLIB
     Indication: HER-2 POSITIVE BREAST CANCER
     Dosage: 400 MG, QD
     Route: 048
     Dates: start: 20190514, end: 20190702
  4. LETROZOLE. [Suspect]
     Active Substance: LETROZOLE
     Indication: HER-2 POSITIVE BREAST CANCER
     Dosage: 2.5 MG, UNK
     Route: 048
     Dates: start: 20190514

REACTIONS (1)
  - Urosepsis [Not Recovered/Not Resolved]

NARRATIVE: CASE EVENT DATE: 20190702
